FAERS Safety Report 6763489-9 (Version None)
Quarter: 2010Q2

REPORT INFORMATION
  Report Type: 
  Country: None (occurrence: None)
  Receive Date: 20100610
  Receipt Date: 20100603
  Transmission Date: 20101027
  Serious: Yes (Hospitalization)
  Sender: FDA-Public Use
  Company Number: US-CELGENEUS-163-C5013-09021411

PATIENT
  Sex: Male
  Weight: 88.3 kg

DRUGS (11)
  1. CC-5013 [Suspect]
     Route: 048
     Dates: start: 20090205
  2. ASPIRIN [Concomitant]
     Indication: PROPHYLAXIS
     Route: 048
     Dates: start: 20010101
  3. VITAMIN B COMPLEX CAP [Concomitant]
     Indication: PROPHYLAXIS
     Route: 048
     Dates: start: 20010101
  4. COSOPT OCUMETER [Concomitant]
     Indication: DRUG USE FOR UNKNOWN INDICATION
     Route: 065
     Dates: start: 20081201
  5. ZOCOR [Concomitant]
     Route: 048
     Dates: start: 20010101
  6. ZOFRAN [Concomitant]
     Indication: NAUSEA
     Route: 048
     Dates: start: 20090101
  7. ZOFRAN [Concomitant]
     Indication: VOMITING
  8. ALLOPURINOL [Concomitant]
     Indication: PROPHYLAXIS
     Route: 048
     Dates: start: 20090130
  9. ATENOLOL [Concomitant]
     Indication: PROPHYLAXIS
     Route: 048
     Dates: start: 20010101
  10. PREDNISONE [Concomitant]
     Route: 048
     Dates: start: 20090210
  11. PRILOSEC [Concomitant]
     Indication: DRUG USE FOR UNKNOWN INDICATION
     Route: 048
     Dates: start: 20080101

REACTIONS (1)
  - FLUID OVERLOAD [None]
